FAERS Safety Report 5177031-X (Version None)
Quarter: 2006Q4

REPORT INFORMATION
  Report Type: 
  Country: None (occurrence: None)
  Receive Date: 20061218
  Receipt Date: 20061017
  Transmission Date: 20070319
  Serious: Yes (Hospitalization)
  Sender: FDA-Public Use
  Company Number: FR-GLAXOSMITHKLINE-B0442795A

PATIENT
  Age: 33 Year
  Sex: Female

DRUGS (3)
  1. CLAMOXYL [Suspect]
     Indication: INFECTIVE MYOSITIS
     Dosage: 1G THREE TIMES PER DAY
     Route: 048
     Dates: start: 20060614, end: 20060906
  2. TAVANIC [Suspect]
     Indication: INFECTIVE MYOSITIS
     Dosage: 1UNIT PER DAY
     Route: 048
     Dates: start: 20060614, end: 20060906
  3. FLAGYL [Suspect]
     Indication: INFECTIVE MYOSITIS
     Dosage: 500MG THREE TIMES PER DAY
     Route: 048
     Dates: start: 20060614, end: 20060829

REACTIONS (5)
  - GAIT DISTURBANCE [None]
  - HYPERAESTHESIA [None]
  - MUSCLE SPASMS [None]
  - PARAESTHESIA [None]
  - PERIPHERAL SENSORY NEUROPATHY [None]
